FAERS Safety Report 19055742 (Version 4)
Quarter: 2021Q3

REPORT INFORMATION
  Report Type: Report from Study
  Country: FR (occurrence: FR)
  Receive Date: 20210324
  Receipt Date: 20210831
  Transmission Date: 20211014
  Serious: Yes (Hospitalization, Other)
  Sender: FDA-Public Use
  Company Number: FR-TAKEDA-FR201816008

PATIENT
  Age: 33 Year
  Sex: Female
  Weight: 59.41 kg

DRUGS (23)
  1. TEDUGLUTIDE [Suspect]
     Active Substance: TEDUGLUTIDE
     Dosage: 2.900 MILLIGRAM, 7 DOSES PER WEEK
     Route: 065
     Dates: start: 20180608, end: 20181125
  2. TEDUGLUTIDE [Suspect]
     Active Substance: TEDUGLUTIDE
     Dosage: 2.800 MILLIGRAM, 7 DOSES PER WEEK
     Route: 065
     Dates: start: 20181126, end: 20190614
  3. TEDUGLUTIDE [Suspect]
     Active Substance: TEDUGLUTIDE
     Dosage: 2.800 MILLIGRAM, 7 DOSES PER WEEK
     Route: 065
     Dates: start: 20181126, end: 20190614
  4. TEDUGLUTIDE [Suspect]
     Active Substance: TEDUGLUTIDE
     Dosage: 2.800 MILLIGRAM, 7 DOSES PER WEEK
     Route: 065
     Dates: start: 20181126, end: 20190614
  5. TEDUGLUTIDE [Suspect]
     Active Substance: TEDUGLUTIDE
     Dosage: 2.600 MILLIGRAM, 7 DOSES PER WEEK
     Route: 065
     Dates: start: 20190615, end: 20191001
  6. ENOXAPARIN SODIUM. [Concomitant]
     Active Substance: ENOXAPARIN SODIUM
     Route: 065
  7. BICARBONATE [Concomitant]
     Active Substance: SODIUM BICARBONATE
     Indication: LACTIC ACIDOSIS
     Route: 065
  8. TEDUGLUTIDE [Suspect]
     Active Substance: TEDUGLUTIDE
     Indication: SHORT-BOWEL SYNDROME
     Dosage: 0.05 MG/KG (2.6 MG), 1X/DAY:QD
     Route: 065
     Dates: start: 20180217, end: 20180607
  9. TEDUGLUTIDE [Suspect]
     Active Substance: TEDUGLUTIDE
     Dosage: 2.600 MILLIGRAM, 7 DOSES PER WEEK
     Route: 065
     Dates: start: 20190615, end: 20191001
  10. TEDUGLUTIDE [Suspect]
     Active Substance: TEDUGLUTIDE
     Indication: SHORT-BOWEL SYNDROME
     Dosage: 0.05 MG/KG (2.6 MG), 1X/DAY:QD
     Route: 065
     Dates: start: 20180217, end: 20180607
  11. TEDUGLUTIDE [Suspect]
     Active Substance: TEDUGLUTIDE
     Dosage: 2.800 MILLIGRAM, 7 DOSES PER WEEK
     Route: 065
     Dates: start: 20181126, end: 20190614
  12. TEDUGLUTIDE [Suspect]
     Active Substance: TEDUGLUTIDE
     Dosage: 2.600 MILLIGRAM, 7 DOSES PER WEEK
     Route: 065
     Dates: start: 20190615, end: 20191001
  13. ZYVOXID [Concomitant]
     Active Substance: LINEZOLID
     Indication: ANTIBIOTIC PROPHYLAXIS
     Dosage: UNK
     Route: 065
  14. ORBENINE [Concomitant]
     Active Substance: CLOXACILLIN SODIUM
     Indication: SEPSIS
     Dosage: 2.00 GRAM, 5X/DAY
     Route: 042
     Dates: start: 20210201, end: 20210205
  15. TEDUGLUTIDE [Suspect]
     Active Substance: TEDUGLUTIDE
     Indication: SHORT-BOWEL SYNDROME
     Dosage: 0.05 MG/KG (2.6 MG), 1X/DAY:QD
     Route: 065
     Dates: start: 20180217, end: 20180607
  16. TEDUGLUTIDE [Suspect]
     Active Substance: TEDUGLUTIDE
     Indication: SHORT-BOWEL SYNDROME
     Dosage: 0.05 MG/KG (2.6 MG), 1X/DAY:QD
     Route: 065
     Dates: start: 20180217, end: 20180607
  17. TEDUGLUTIDE [Suspect]
     Active Substance: TEDUGLUTIDE
     Dosage: 2.900 MILLIGRAM, 7 DOSES PER WEEK
     Route: 065
     Dates: start: 20180608, end: 20181125
  18. TEDUGLUTIDE [Suspect]
     Active Substance: TEDUGLUTIDE
     Dosage: 2.900 MILLIGRAM, 7 DOSES PER WEEK
     Route: 065
     Dates: start: 20180608, end: 20181125
  19. TEDUGLUTIDE [Suspect]
     Active Substance: TEDUGLUTIDE
     Dosage: 2.900 MILLIGRAM, 7 DOSES PER WEEK
     Route: 065
     Dates: start: 20180608, end: 20181125
  20. TEDUGLUTIDE [Suspect]
     Active Substance: TEDUGLUTIDE
     Dosage: 2.600 MILLIGRAM, 7 DOSES PER WEEK
     Route: 065
     Dates: start: 20190615, end: 20191001
  21. INNOHEP [Concomitant]
     Active Substance: TINZAPARIN SODIUM
     Indication: SEPSIS
     Dosage: 0.50 MILLILITER, QD
     Route: 065
     Dates: start: 20210205
  22. VITAMIN D [Concomitant]
     Active Substance: VITAMIN D NOS
     Indication: VITAMIN D DEFICIENCY
     Dosage: 1 AMPS, QD
     Route: 048
     Dates: start: 20200606
  23. LEVOCARNIL [Concomitant]
     Active Substance: LEVOCARNITINE
     Indication: CARNITINE DEFICIENCY
     Dosage: 1 AMPS, TID
     Route: 048
     Dates: start: 20200606

REACTIONS (5)
  - Pulmonary mass [Not Recovered/Not Resolved]
  - Deep vein thrombosis [Recovered/Resolved]
  - Device related infection [Recovered/Resolved]
  - Proctalgia [Recovered/Resolved]
  - Catheter site inflammation [Recovered/Resolved]

NARRATIVE: CASE EVENT DATE: 201803
